FAERS Safety Report 7599445-0 (Version None)
Quarter: 2011Q3

REPORT INFORMATION
  Report Type: 
  Country: None (occurrence: None)
  Receive Date: 20110711
  Receipt Date: 20081226
  Transmission Date: 20111222
  Serious: Yes (Death, Other)
  Sender: FDA-Public Use
  Company Number: US-BAYER-200841241NA

PATIENT
  Age: 60 Year
  Sex: Female
  Weight: 72.562 kg

DRUGS (24)
  1. NOREPINEPHRINE BITARTRATE [Concomitant]
     Dosage: UNK
     Route: 042
     Dates: start: 20050611
  2. PLASMA [Concomitant]
     Dosage: 2 U, UNK
     Route: 042
     Dates: start: 20050612
  3. TRASYLOL [Suspect]
     Dosage: 200 ML, LOADING DOSE
     Route: 042
     Dates: start: 20050611, end: 20050611
  4. VERPAMIL HCL [Concomitant]
  5. SOLU-MEDROL [Concomitant]
     Dosage: 10 ML, UNK
     Dates: start: 20050611
  6. INSULIN [Concomitant]
     Dosage: 30 U, UNK
     Route: 042
     Dates: start: 20050611
  7. VANCOMYCIN [Concomitant]
     Dosage: 1 G, UNK
     Route: 042
     Dates: start: 20050611
  8. ZINACEF [Concomitant]
     Dosage: 1.5 G, UNK
     Route: 042
     Dates: start: 20050611
  9. RED BLOOD CELLS [Concomitant]
     Dosage: 2 U, UNK
     Route: 042
     Dates: start: 20050612
  10. MAXIDEX [Concomitant]
  11. HEPARIN [Concomitant]
     Dosage: 30000 U, UNK
     Route: 042
     Dates: start: 20050611
  12. TRASYLOL [Suspect]
     Dosage: 200 ML, CARDIOPULMONARY BYPASS PRIME
     Route: 042
     Dates: start: 20050611, end: 20050611
  13. PLASMANATE [Concomitant]
     Dosage: 1200 ML, UNK
     Route: 042
  14. LIDOCAINE [Concomitant]
     Dosage: 100 MG, UNK
     Route: 042
     Dates: start: 20050611
  15. ALBUMIN (HUMAN) [Concomitant]
     Dosage: 12.5 G, UNK
     Route: 042
     Dates: start: 20050611
  16. ALBUMIN (HUMAN) [Concomitant]
     Dosage: 250CC
     Route: 042
     Dates: start: 20050611
  17. RED BLOOD CELLS [Concomitant]
     Dosage: 500CC
     Route: 042
     Dates: start: 20050611
  18. TRASYLOL [Suspect]
     Indication: CORONARY ARTERY BYPASS
     Dosage: 2 ML, TEST DOSE
     Route: 042
     Dates: start: 20050611, end: 20050611
  19. RED BLOOD CELLS [Concomitant]
     Dosage: 1000 ML, UNK
     Route: 042
     Dates: start: 20050612
  20. ETOMIDATE [Concomitant]
     Dosage: UNK
     Route: 042
     Dates: start: 20050611
  21. AMIODARONE HCL [Concomitant]
     Dosage: UNK
     Route: 042
     Dates: start: 20050611
  22. PAXIL [Concomitant]
  23. FENTANYL [Concomitant]
     Dosage: UNK
     Route: 042
     Dates: start: 20050611
  24. VERSED [Concomitant]
     Dosage: UNK
     Route: 042
     Dates: start: 20050611

REACTIONS (4)
  - INJURY [None]
  - MYOCARDIAL INFARCTION [None]
  - CARDIOGENIC SHOCK [None]
  - RENAL FAILURE [None]
